FAERS Safety Report 11514197 (Version 1)
Quarter: 2015Q3

REPORT INFORMATION
  Report Type: Spontaneous
  Country: US (occurrence: US)
  Receive Date: 20150903
  Receipt Date: 20150903
  Transmission Date: 20151125
  Serious: No
  Sender: FDA-Public Use
  Company Number: US-ELI_LILLY_AND_COMPANY-US201210009817

PATIENT
  Sex: Female

DRUGS (10)
  1. OMEPRAZOLE. [Concomitant]
     Active Substance: OMEPRAZOLE
     Dosage: 20 MG, UNKNOWN
  2. DEPLIN [Concomitant]
     Active Substance: LEVOMEFOLATE CALCIUM
     Dosage: 15 MG, UNKNOWN
  3. CYMBALTA [Suspect]
     Active Substance: DULOXETINE HYDROCHLORIDE
     Indication: DEPRESSION
     Dosage: 60 MG, QD
     Dates: start: 201205, end: 201210
  4. ALLOPURINOL. [Concomitant]
     Active Substance: ALLOPURINOL
     Dosage: 100 MG, UNKNOWN
  5. CALCIUM [Concomitant]
     Active Substance: CALCIUM
  6. LISINOPRIL AND HYDROCHLOROTHIAZIDE [Concomitant]
     Active Substance: HYDROCHLOROTHIAZIDE\LISINOPRIL
  7. SIMCOR [Concomitant]
     Active Substance: NIACIN\SIMVASTATIN
  8. CELEBREX [Concomitant]
     Active Substance: CELECOXIB
     Dosage: 200 MG, UNKNOWN
  9. PREDNISONE. [Concomitant]
     Active Substance: PREDNISONE
     Dosage: 5 MG, UNKNOWN
  10. ACTONEL [Concomitant]
     Active Substance: RISEDRONATE SODIUM
     Dosage: 35 MG, UNKNOWN

REACTIONS (9)
  - Rash [Unknown]
  - Nightmare [Unknown]
  - Dizziness [Unknown]
  - Paraesthesia [Unknown]
  - Nausea [Unknown]
  - Diarrhoea [Unknown]
  - Performance status decreased [Unknown]
  - Insomnia [Unknown]
  - Burning sensation [Unknown]
